FAERS Safety Report 7924553-1 (Version None)
Quarter: 2011Q4

REPORT INFORMATION
  Report Type: 
  Country: None (occurrence: None)
  Receive Date: 20111117
  Receipt Date: 20040419
  Transmission Date: 20120403
  Serious: Yes (Other)
  Sender: FDA-Public Use
  Company Number: PHHY2004CO005070

PATIENT
  Sex: Male

DRUGS (2)
  1. MORFINE [Concomitant]
  2. TRILEPTAL [Suspect]
     Indication: NEURALGIA
     Dosage: 300 MG, ONCE/SINGLE
     Route: 048
     Dates: start: 20031001

REACTIONS (1)
  - SPINAL CORD NEOPLASM [None]
